FAERS Safety Report 23487092 (Version 3)
Quarter: 2024Q2

REPORT INFORMATION
  Report Type: Report from Study
  Country: CA (occurrence: CA)
  Receive Date: 20240206
  Receipt Date: 20240626
  Transmission Date: 20240715
  Serious: Yes (Other)
  Sender: FDA-Public Use
  Company Number: CA-HBP-2024CA030344

PATIENT
  Age: 75 Year
  Sex: Male

DRUGS (1)
  1. MECHLORETHAMINE HYDROCHLORIDE [Suspect]
     Active Substance: MECHLORETHAMINE HYDROCHLORIDE
     Indication: Cutaneous T-cell lymphoma stage I
     Dosage: UNK, UNKNOWN
     Route: 065
     Dates: start: 20230321

REACTIONS (4)
  - Cutaneous T-cell lymphoma [Unknown]
  - Disease progression [Unknown]
  - Skin plaque [Unknown]
  - Treatment noncompliance [Unknown]
